FAERS Safety Report 10060637 (Version 1)
Quarter: 2014Q2

REPORT INFORMATION
  Report Type: Report from Study
  Country: GB (occurrence: GB)
  Receive Date: 20140404
  Receipt Date: 20140404
  Transmission Date: 20141212
  Serious: Yes (Death, Other)
  Sender: FDA-Public Use
  Company Number: GB-BAXTER-2014BAX015933

PATIENT
  Age: 79 Year
  Sex: Female

DRUGS (7)
  1. KIOVIG 100 MG/ML SOLUTION FOR INFUSION [Suspect]
     Indication: NEUROMYELITIS OPTICA
     Dosage: 2 G/KG
     Route: 042
  2. KIOVIG 100 MG/ML SOLUTION FOR INFUSION [Suspect]
     Indication: OFF LABEL USE
  3. PREDNISOLONE [Suspect]
     Indication: IMMUNOSUPPRESSANT DRUG THERAPY
     Route: 048
  4. AZATHIOPRINE [Suspect]
     Indication: IMMUNOSUPPRESSANT DRUG THERAPY
     Route: 065
  5. METHYLPREDNISOLONE [Suspect]
     Indication: NEUROMYELITIS OPTICA
     Route: 048
  6. METHYLPREDNISOLONE [Suspect]
     Route: 042
  7. PREDNISONE [Suspect]
     Indication: NEUROMYELITIS OPTICA
     Route: 065

REACTIONS (4)
  - Pneumonia [Fatal]
  - Myocardial infarction [Recovered/Resolved]
  - Lower respiratory tract infection [Recovered/Resolved]
  - Drug ineffective [Unknown]
